FAERS Safety Report 23882597 (Version 1)
Quarter: 2024Q2

REPORT INFORMATION
  Report Type: Spontaneous
  Country: ES (occurrence: ES)
  Receive Date: 20240522
  Receipt Date: 20240522
  Transmission Date: 20240716
  Serious: Yes (Other)
  Sender: FDA-Public Use
  Company Number: ES-AEMPS-1518540

PATIENT
  Age: 80 Year
  Sex: Male
  Weight: 74 kg

DRUGS (5)
  1. MEROPENEM [Suspect]
     Active Substance: MEROPENEM
     Indication: Liver abscess
     Dosage: UNK
     Route: 042
     Dates: start: 20240117, end: 20240119
  2. CEFOTAXIME SODIUM [Suspect]
     Active Substance: CEFOTAXIME SODIUM
     Indication: Liver abscess
     Dosage: UNK
     Route: 042
     Dates: start: 20240119, end: 20240124
  3. CEFTRIAXONE [Suspect]
     Active Substance: CEFTRIAXONE\CEFTRIAXONE SODIUM
     Indication: Liver abscess
     Dosage: UNK
     Route: 042
     Dates: start: 20240124, end: 20240222
  4. AMIKACIN SULFATE [Suspect]
     Active Substance: AMIKACIN SULFATE
     Indication: Liver abscess
     Dosage: UNK
     Route: 042
     Dates: start: 20240117, end: 20240118
  5. OMEPRAZOLE [Concomitant]
     Active Substance: DONEPEZIL HYDROCHLORIDE\OMEPRAZOLE\OMEPRAZOLE MAGNESIUM
     Indication: Liver abscess
     Dosage: UNK
     Route: 048
     Dates: start: 202103, end: 20240126

REACTIONS (1)
  - Pseudomembranous colitis [Recovered/Resolved]

NARRATIVE: CASE EVENT DATE: 20240125
